FAERS Safety Report 5077010-7 (Version None)
Quarter: 2006Q3

REPORT INFORMATION
  Report Type: 
  Country: None (occurrence: None)
  Receive Date: 20060810
  Receipt Date: 20060524
  Transmission Date: 20061208
  Serious: No
  Sender: FDA-Public Use
  Company Number: 2428

PATIENT
  Age: 47 Year
  Sex: Male

DRUGS (2)
  1. PAROXETINE HCL [Suspect]
     Indication: DEPRESSION
     Dosage: 10MG PER DAY
     Route: 048
     Dates: start: 20010101
  2. NO CONCURRENT MEDICATION [Concomitant]

REACTIONS (3)
  - DRUG ADMINISTRATION ERROR [None]
  - FATIGUE [None]
  - HYPERHIDROSIS [None]
